FAERS Safety Report 13314827 (Version 3)
Quarter: 2025Q2

REPORT INFORMATION
  Report Type: Report from Study
  Country: US (occurrence: US)
  Receive Date: 20170309
  Receipt Date: 20250404
  Transmission Date: 20250716
  Serious: Yes (Hospitalization)
  Sender: TAKEDA
  Company Number: US-BAXALTA-2017BLT001752

PATIENT
  Sex: Male
  Weight: 93 kg

DRUGS (6)
  1. HUMAN IMMUNOGLOBULIN G [Suspect]
     Active Substance: HUMAN IMMUNOGLOBULIN G
     Indication: Immunodeficiency common variable
     Dosage: 58 GRAM, Q4WEEKS
     Dates: start: 20220202
  2. HUMAN IMMUNOGLOBULIN G [Suspect]
     Active Substance: HUMAN IMMUNOGLOBULIN G
     Dosage: 60 GRAM, Q4WEEKS
  3. AMOXICILLIN [Suspect]
     Active Substance: AMOXICILLIN
     Indication: Product used for unknown indication
  4. AUGMENTIN [Suspect]
     Active Substance: AMOXICILLIN\CLAVULANATE POTASSIUM
     Indication: Product used for unknown indication
  5. FOLIC ACID [Concomitant]
     Active Substance: FOLIC ACID
  6. LEXAPRO [Concomitant]
     Active Substance: ESCITALOPRAM OXALATE

REACTIONS (2)
  - Illness [Unknown]
  - Drug hypersensitivity [Unknown]
